FAERS Safety Report 10901175 (Version 1)
Quarter: 2015Q1

REPORT INFORMATION
  Report Type: Spontaneous
  Country: US (occurrence: None)
  Receive Date: 20150303
  Receipt Date: 20150303
  Transmission Date: 20150721
  Serious: Yes (Hospitalization)
  Sender: FDA-Public Use
  Company Number: 201502106

PATIENT
  Age: 56 Year
  Sex: Male
  Weight: 54.43 kg

DRUGS (7)
  1. FENOFIBRATE. [Concomitant]
     Active Substance: FENOFIBRATE
  2. LORAZA (OMEGA-3-ACID ETHYL ESTER) [Concomitant]
  3. CRESTOR [Concomitant]
     Active Substance: ROSUVASTATIN CALCIUM
  4. LEVOTHYROXINE [Concomitant]
     Active Substance: LEVOTHYROXINE
  5. ZANTAC (OMEGA-3-ACID ETHYL ESTER) [Concomitant]
  6. XIAFLEX [Suspect]
     Active Substance: COLLAGENASE CLOSTRIDIUM HISTOLYTICUM
     Indication: PEYRONIE^S DISEASE
     Dosage: INTRALESIONAL ???
  7. TESTOSTERONE (TESTOSTERONE) [Concomitant]

REACTIONS (1)
  - Fracture of penis [None]
